FAERS Safety Report 10597547 (Version 1)
Quarter: 2014Q4

REPORT INFORMATION
  Report Type: Report from Study
  Country: NL (occurrence: NL)
  Receive Date: 20141121
  Receipt Date: 20141121
  Transmission Date: 20150529
  Serious: Yes (Other)
  Sender: FDA-Public Use
  Company Number: NL-AMGEN-NLDSL2012086757

PATIENT
  Age: 84 Year
  Sex: Male

DRUGS (1)
  1. ARANESP [Suspect]
     Active Substance: DARBEPOETIN ALFA
     Indication: PRODUCT USED FOR UNKNOWN INDICATION
     Dosage: 1 ML (500MCG/ML), Q3WK
     Route: 065

REACTIONS (15)
  - Hypoaesthesia [Unknown]
  - Haemoglobin abnormal [Unknown]
  - Malaise [Unknown]
  - Somnolence [Unknown]
  - Purpura [Unknown]
  - Cataract [Unknown]
  - Influenza like illness [Unknown]
  - Balance disorder [Unknown]
  - Gout [Unknown]
  - Bone pain [Unknown]
  - Gait disturbance [Unknown]
  - Skin discolouration [Unknown]
  - Fatigue [Unknown]
  - Pain in extremity [Unknown]
  - Arthralgia [Unknown]
